FAERS Safety Report 5302950-0 (Version None)
Quarter: 2007Q2

REPORT INFORMATION
  Report Type: 
  Country: None (occurrence: None)
  Receive Date: 20070413
  Receipt Date: 20070405
  Transmission Date: 20071010
  Serious: Yes (Other)
  Sender: FDA-Public Use
  Company Number: 232687K07USA

PATIENT
  Age: 50 Year
  Sex: Female

DRUGS (9)
  1. REBIF [Suspect]
     Indication: MULTIPLE SCLEROSIS
     Dosage: 44 MCG, 3 IN 1 WEEKS, SUBCUTANEOUS
     Route: 058
     Dates: start: 20060807
  2. ATENOLOL [Concomitant]
  3. DITROPAN (OXYBUTYNIN /00538901/) [Concomitant]
  4. PREVACID [Concomitant]
  5. PROVIGIL [Concomitant]
  6. LORATADINE [Concomitant]
  7. LIPITOR [Concomitant]
  8. INDOCIN [Concomitant]
  9. OXYCONTIN ER (OXYCODONE HYDROCHLORIDE) [Concomitant]

REACTIONS (1)
  - COLON CANCER RECURRENT [None]
